FAERS Safety Report 4998683-0 (Version None)
Quarter: 2006Q2

REPORT INFORMATION
  Report Type: 
  Country: None (occurrence: None)
  Receive Date: 20060508
  Receipt Date: 20060428
  Transmission Date: 20061013
  Serious: Yes (Hospitalization)
  Sender: FDA-Public Use
  Company Number: 2005-07-2015

PATIENT

DRUGS (1)
  1. TEMODAL [Suspect]
     Dates: end: 20050301

REACTIONS (3)
  - ABORTION INDUCED [None]
  - PREGNANCY OF PARTNER [None]
  - TRANSMISSION OF DRUG VIA SEMEN [None]
